FAERS Safety Report 15584613 (Version 1)
Quarter: 2018Q4

REPORT INFORMATION
  Report Type: Spontaneous
  Country: US (occurrence: US)
  Receive Date: 20181105
  Receipt Date: 20181105
  Transmission Date: 20190205
  Serious: No
  Sender: FDA-Public Use
  Company Number: None

PATIENT
  Age: 52 Year
  Sex: Male
  Weight: 78.75 kg

DRUGS (3)
  1. LOTEMAX [Suspect]
     Active Substance: LOTEPREDNOL ETABONATE
     Indication: EYE IRRITATION
     Route: 047
     Dates: start: 20130118, end: 20180720
  2. LOTEMAX [Suspect]
     Active Substance: LOTEPREDNOL ETABONATE
     Indication: ERYTHEMA
     Route: 047
     Dates: start: 20130118, end: 20180720
  3. TOBRADEX [Suspect]
     Active Substance: DEXAMETHASONE\TOBRAMYCIN
     Indication: INFECTION PROPHYLAXIS
     Route: 047

REACTIONS (11)
  - Corneal scar [None]
  - Eyelid ptosis [None]
  - Ulcerative keratitis [None]
  - Corneal neovascularisation [None]
  - Drug dependence [None]
  - Erythema [None]
  - Corneal irritation [None]
  - Photophobia [None]
  - Intraocular pressure increased [None]
  - Eye pain [None]
  - Episcleritis [None]

NARRATIVE: CASE EVENT DATE: 20101025
